FAERS Safety Report 19784115 (Version 2)
Quarter: 2021Q3

REPORT INFORMATION
  Report Type: Spontaneous
  Country: HU (occurrence: HU)
  Receive Date: 20210903
  Receipt Date: 20210913
  Transmission Date: 20211014
  Serious: Yes (Death)
  Sender: FDA-Public Use
  Company Number: HU-TOPROL-2021000187

PATIENT
  Age: 77 Year
  Sex: Male

DRUGS (10)
  1. VALSARTAN. [Suspect]
     Active Substance: VALSARTAN
     Route: 065
  2. BETALOC ZOK [Suspect]
     Active Substance: METOPROLOL SUCCINATE
     Route: 065
  3. SYNCUMAR [Suspect]
     Active Substance: ACENOCOUMAROL
     Route: 065
  4. ALLOPURINOL. [Suspect]
     Active Substance: ALLOPURINOL
     Route: 065
  5. MIDAZOLAM. [Suspect]
     Active Substance: MIDAZOLAM
     Route: 065
  6. DOXAZOSIN [Suspect]
     Active Substance: DOXAZOSIN MESYLATE
     Route: 065
  7. TADUSTA [Suspect]
     Active Substance: DUTASTERIDE\TAMSULOSIN HYDROCHLORIDE
     Route: 048
  8. TRENTAL [Suspect]
     Active Substance: PENTOXIFYLLINE
     Route: 065
  9. INDAPAMIDE. [Suspect]
     Active Substance: INDAPAMIDE
     Route: 065
  10. ZOCOR [Suspect]
     Active Substance: SIMVASTATIN
     Route: 065

REACTIONS (2)
  - Acute myocardial infarction [Fatal]
  - Death [Fatal]
